FAERS Safety Report 5184820-4 (Version None)
Quarter: 2006Q4

REPORT INFORMATION
  Report Type: 
  Country: None (occurrence: None)
  Receive Date: 20061220
  Receipt Date: 20060427
  Transmission Date: 20070319
  Serious: No
  Sender: FDA-Public Use
  Company Number: US-GLAXOSMITHKLINE-A0603468A

PATIENT
  Age: 42 Year

DRUGS (1)
  1. NICODERM CQ [Suspect]
     Dates: start: 20060316, end: 20060426

REACTIONS (4)
  - ABNORMAL DREAMS [None]
  - HOT FLUSH [None]
  - MENSTRUATION DELAYED [None]
  - NAUSEA [None]
